FAERS Safety Report 16727020 (Version 3)
Quarter: 2019Q3

REPORT INFORMATION
  Report Type: Report from Study
  Country: IE (occurrence: IE)
  Receive Date: 20190821
  Receipt Date: 20190930
  Transmission Date: 20191005
  Serious: Yes (Hospitalization)
  Sender: FDA-Public Use
  Company Number: IE-BAXTER-2019BAX015760

PATIENT
  Age: 40 Year
  Sex: Male

DRUGS (1)
  1. RINGERS SOLUTION [Suspect]
     Active Substance: CALCIUM CHLORIDE\POTASSIUM CHLORIDE\SODIUM CHLORIDE
     Indication: PRODUCT USED FOR UNKNOWN INDICATION
     Dosage: 1 L HARTMANN^S SOLUTION
     Route: 042
     Dates: start: 20190803

REACTIONS (11)
  - Gastroenteritis norovirus [Recovering/Resolving]
  - Catheter site erythema [Recovering/Resolving]
  - Rash pruritic [Recovered/Resolved]
  - Musculoskeletal pain [Recovered/Resolved]
  - Gastrointestinal stoma complication [Recovering/Resolving]
  - Rash erythematous [Recovered/Resolved]
  - Asthenia [Recovering/Resolving]
  - Syncope [Recovering/Resolving]
  - Pain [Recovered/Resolved]
  - Catheter site discharge [Recovering/Resolving]
  - Application site irritation [Recovered/Resolved]

NARRATIVE: CASE EVENT DATE: 201908
